FAERS Safety Report 10167030 (Version 2)
Quarter: 2014Q2

REPORT INFORMATION
  Report Type: Spontaneous
  Country: US (occurrence: US)
  Receive Date: 20140512
  Receipt Date: 20140519
  Transmission Date: 20141212
  Serious: Yes (Hospitalization)
  Sender: FDA-Public Use
  Company Number: US-BAXTER-2014BAX022916

PATIENT
  Age: 56 Year
  Sex: Male

DRUGS (5)
  1. DIANEAL PD2 [Suspect]
     Indication: PERITONEAL DIALYSIS
     Dosage: 2 BAGS
     Route: 033
     Dates: start: 201309
  2. LISINOPRIL [Suspect]
     Indication: HYPERTENSION
     Route: 048
  3. AMLODIPINE [Suspect]
     Indication: HYPERTENSION
     Route: 048
  4. AMLODIPINE [Suspect]
     Route: 048
  5. PREDNISONE [Concomitant]
     Indication: VASCULITIS

REACTIONS (2)
  - Loss of consciousness [Recovered/Resolved]
  - Head injury [Recovered/Resolved]
